FAERS Safety Report 5818378-0 (Version None)
Quarter: 2008Q3

REPORT INFORMATION
  Report Type: 
  Country: None (occurrence: None)
  Receive Date: 20080716
  Receipt Date: 20080709
  Transmission Date: 20090109
  Serious: Yes (Hospitalization)
  Sender: FDA-Public Use
  Company Number: 009-C5013-08060535

PATIENT
  Age: 66 Year
  Sex: Male
  Weight: 70 kg

DRUGS (5)
  1. CC-5013 (LENALIDOMIDE) (CAPSULES) [Suspect]
     Indication: MULTIPLE MYELOMA
     Dosage: 25 MG, DAILY, ORAL; 25 MG, 1 IN 1 D, ORAL
     Route: 048
     Dates: start: 20080312, end: 20080606
  2. CC-5013 (LENALIDOMIDE) (CAPSULES) [Suspect]
     Indication: MULTIPLE MYELOMA
     Dosage: 25 MG, DAILY, ORAL; 25 MG, 1 IN 1 D, ORAL
     Route: 048
     Dates: start: 20080611
  3. CC-5013\ PLACEBO (LENALIDOMIDE) (CAPSULES) [Suspect]
     Indication: MULTIPLE MYELOMA
     Dosage: ORAL
     Route: 048
     Dates: start: 20070312
  4. MELPHALAN (MELPHALAN) [Suspect]
     Indication: MULTIPLE MYELOMA
     Dates: start: 20070312, end: 20071116
  5. PREDNISONE [Suspect]
     Indication: MULTIPLE MYELOMA
     Dates: start: 20070312, end: 20071116

REACTIONS (3)
  - ANGIOEDEMA [None]
  - MUSCULOSKELETAL CHEST PAIN [None]
  - URTICARIA [None]
